FAERS Safety Report 13192668 (Version 3)
Quarter: 2017Q2

REPORT INFORMATION
  Report Type: Report from Study
  Country: BR (occurrence: BR)
  Receive Date: 20170207
  Receipt Date: 20170425
  Transmission Date: 20170830
  Serious: Yes (Hospitalization, Other)
  Sender: FDA-Public Use
  Company Number: BR-ALEXION-A201700950

PATIENT
  Age: 44 Year
  Sex: Male

DRUGS (2)
  1. SOLIRIS [Suspect]
     Active Substance: ECULIZUMAB
     Dosage: 900 MG, UNK
     Route: 042
     Dates: start: 20131024
  2. SOLIRIS [Suspect]
     Active Substance: ECULIZUMAB
     Indication: PAROXYSMAL NOCTURNAL HAEMOGLOBINURIA
     Dosage: 600 MG, UNK
     Route: 042
     Dates: start: 20130926, end: 20131017

REACTIONS (4)
  - Venous thrombosis [Recovered/Resolved]
  - Inappropriate schedule of drug administration [Recovered/Resolved]
  - Haemoglobin decreased [Not Recovered/Not Resolved]
  - International normalised ratio abnormal [Recovered/Resolved]

NARRATIVE: CASE EVENT DATE: 20170126
